FAERS Safety Report 16373272 (Version 1)
Quarter: 2019Q2

REPORT INFORMATION
  Report Type: Spontaneous
  Country: PL (occurrence: PL)
  Receive Date: 20190530
  Receipt Date: 20190530
  Transmission Date: 20190711
  Serious: Yes (Other)
  Sender: FDA-Public Use
  Company Number: PHHY2019PL117698

PATIENT
  Sex: Female

DRUGS (1)
  1. EBETREXAT [Suspect]
     Active Substance: METHOTREXATE SODIUM
     Indication: RHEUMATOID ARTHRITIS
     Dosage: 25 MG, QW
     Route: 058

REACTIONS (4)
  - Concomitant disease aggravated [Unknown]
  - Optic nerve injury [Unknown]
  - Eye pain [Unknown]
  - Visual impairment [Unknown]
